FAERS Safety Report 7884445-3 (Version None)
Quarter: 2011Q4

REPORT INFORMATION
  Report Type: 
  Country: None (occurrence: None)
  Receive Date: 20111102
  Receipt Date: 20110907
  Transmission Date: 20120403
  Serious: Yes (Other)
  Sender: FDA-Public Use
  Company Number: US-ASTRAZENECA-2011SE37098

PATIENT
  Age: 62 Year
  Sex: Male

DRUGS (3)
  1. VANDETANIB [Suspect]
     Route: 048
  2. IMODIUM [Concomitant]
     Indication: DIARRHOEA
     Dosage: AS NEEDED
     Route: 048
  3. VANDETANIB [Suspect]
     Indication: THYROID CANCER
     Route: 048
     Dates: start: 20110607

REACTIONS (5)
  - HOT FLUSH [None]
  - MYALGIA INTERCOSTAL [None]
  - ELECTROCARDIOGRAM QT INTERVAL ABNORMAL [None]
  - DRY MOUTH [None]
  - SKIN DISORDER [None]
